FAERS Safety Report 13646297 (Version 1)
Quarter: 2017Q2

REPORT INFORMATION
  Report Type: Spontaneous
  Country: US (occurrence: US)
  Receive Date: 20170612
  Receipt Date: 20170612
  Transmission Date: 20170830
  Serious: Yes (Death)
  Sender: FDA-Public Use
  Company Number: None

PATIENT
  Age: 61 Year
  Sex: Male

DRUGS (6)
  1. EFFIENT [Concomitant]
     Active Substance: PRASUGREL HYDROCHLORIDE
  2. GABAPENTIN. [Concomitant]
     Active Substance: GABAPENTIN
  3. PRALUENT [Suspect]
     Active Substance: ALIROCUMAB
     Indication: HYPERLIPIDAEMIA
     Dosage: ?          OTHER FREQUENCY:EVERY 2 WEEKS;?
     Route: 058
  4. NEXIUM [Concomitant]
     Active Substance: ESOMEPRAZOLE MAGNESIUM
  5. LYRICA [Concomitant]
     Active Substance: PREGABALIN
  6. NITROGYLCERIN [Concomitant]

REACTIONS (1)
  - Death [None]
